FAERS Safety Report 12399403 (Version 2)
Quarter: 2016Q4

REPORT INFORMATION
  Report Type: Spontaneous
  Country: US (occurrence: US)
  Receive Date: 20160524
  Receipt Date: 20161122
  Transmission Date: 20170207
  Serious: No
  Sender: FDA-Public Use
  Company Number: US-PERNIX THERAPEUTICS-2016PT000051

PATIENT

DRUGS (8)
  1. SOY ISOFLAVONE [Concomitant]
     Active Substance: ISOFLAVONES SOY
     Indication: SUPPLEMENTATION THERAPY
  2. NIACIN. [Concomitant]
     Active Substance: NIACIN
     Indication: SUPPLEMENTATION THERAPY
  3. SUTENT [Concomitant]
     Active Substance: SUNITINIB MALATE
     Indication: RENAL CANCER
     Dosage: 50 MG, 28 DAYS ON/14 DAYS OFF
  4. VITAMIN B [Concomitant]
     Active Substance: VITAMIN B
     Indication: SUPPLEMENTATION THERAPY
  5. HYDROCODONE BITARTRATE. [Suspect]
     Active Substance: HYDROCODONE BITARTRATE
     Indication: ARTHRALGIA
     Dosage: UNKNOWN
     Route: 065
  6. FOLIC ACID. [Concomitant]
     Active Substance: FOLIC ACID
     Indication: SUPPLEMENTATION THERAPY
  7. KYOLIC [Concomitant]
     Indication: SUPPLEMENTATION THERAPY
  8. PRILOSEC [Concomitant]
     Active Substance: OMEPRAZOLE MAGNESIUM
     Indication: GASTROOESOPHAGEAL REFLUX DISEASE

REACTIONS (6)
  - Chromaturia [Recovered/Resolved]
  - Chills [Unknown]
  - Decreased appetite [Recovered/Resolved]
  - Constipation [Recovered/Resolved]
  - Hyperhidrosis [Unknown]
  - Pyrexia [Recovered/Resolved]

NARRATIVE: CASE EVENT DATE: 2016
